FAERS Safety Report 25864832 (Version 2)
Quarter: 2025Q4

REPORT INFORMATION
  Report Type: Report from Study
  Country: GB (occurrence: GB)
  Receive Date: 20250930
  Receipt Date: 20251007
  Transmission Date: 20260117
  Serious: Yes (Other)
  Sender: ABBVIE
  Company Number: GB-ABBVIE-6478105

PATIENT
  Sex: Female

DRUGS (1)
  1. HUMIRA [Suspect]
     Active Substance: ADALIMUMAB
     Indication: Iridocyclitis
     Dosage: 40MG/0.4ML, 2 PRE-FILLED DISPOSABLE INJECTION FOA: SOLUTION FOR INJECTION IN PRE-FILLED PEN
     Route: 058

REACTIONS (2)
  - Neoplasm malignant [Not Recovered/Not Resolved]
  - Hepatic enzyme increased [Not Recovered/Not Resolved]
